FAERS Safety Report 6605190-8 (Version None)
Quarter: 2010Q1

REPORT INFORMATION
  Report Type: 
  Country: None (occurrence: None)
  Receive Date: 20100226
  Receipt Date: 20100218
  Transmission Date: 20100710
  Serious: Yes (Death)
  Sender: FDA-Public Use
  Company Number: US-AMGEN-QUU393666

PATIENT
  Sex: Female

DRUGS (3)
  1. NPLATE [Suspect]
     Indication: IDIOPATHIC THROMBOCYTOPENIC PURPURA
     Dates: start: 20080924
  2. CORTICOSTEROIDS [Concomitant]
     Dates: start: 20080723
  3. RITUXIMAB [Concomitant]
     Dates: start: 20080821

REACTIONS (1)
  - DEATH [None]
